FAERS Safety Report 23338947 (Version 1)
Quarter: 2023Q4

REPORT INFORMATION
  Report Type: Spontaneous
  Country: US (occurrence: US)
  Receive Date: 20231226
  Receipt Date: 20231226
  Transmission Date: 20240109
  Serious: No
  Sender: FDA-Public Use
  Company Number: US-INCYTE CORPORATION-2023IN013132

PATIENT

DRUGS (1)
  1. JAKAFI [Suspect]
     Active Substance: RUXOLITINIB
     Indication: Graft versus host disease
     Dosage: TAKE 2 TABLETS BY MOUTH IN THE MORNING AND TABLET IN THE EVENING
     Route: 048
     Dates: start: 202308

REACTIONS (3)
  - Weight increased [Unknown]
  - Asthenia [Unknown]
  - Fatigue [Unknown]
